FAERS Safety Report 9213789 (Version 2)
Quarter: 2013Q2

REPORT INFORMATION
  Report Type: Spontaneous
  Country: US (occurrence: US)
  Receive Date: 20130405
  Receipt Date: 20130412
  Transmission Date: 20140414
  Serious: Yes (Hospitalization)
  Sender: FDA-Public Use
  Company Number: US-BAYER-2013-039915

PATIENT
  Age: 34 Year
  Sex: Female

DRUGS (5)
  1. YASMIN [Suspect]
     Dosage: UNK
  2. OCELLA [Suspect]
  3. RISPERDAL [Concomitant]
     Dosage: 25 MG, EVERY 2 WEEKS
     Route: 030
  4. CELEXA [Concomitant]
     Dosage: 10 MG, OR 6 TABLETS DAILY
  5. IBUPROFEN [Concomitant]
     Indication: PAIN
     Dosage: 400 MG, UNK

REACTIONS (2)
  - Pulmonary embolism [None]
  - Deep vein thrombosis [None]
